FAERS Safety Report 5501289-8 (Version None)
Quarter: 2007Q4

REPORT INFORMATION
  Report Type: 
  Country: None (occurrence: None)
  Receive Date: 20071026
  Receipt Date: 20071014
  Transmission Date: 20080405
  Serious: Yes (Other)
  Sender: FDA-Public Use
  Company Number: CHPA2007US10808

PATIENT
  Age: 56 Year
  Sex: Male
  Weight: 68 kg

DRUGS (2)
  1. MYOFLEX ANALGESIC CREME (TRIETHANOLAMINE SALICYLATE) [Suspect]
     Indication: MYALGIA
     Dosage: 1 APPLICATION, ONCE/SINGLE, TOPICAL
     Route: 061
     Dates: start: 20071012
  2. SYNTHROID [Concomitant]

REACTIONS (4)
  - BLISTER [None]
  - HEAT RASH [None]
  - RASH ERYTHEMATOUS [None]
  - SKIN BURNING SENSATION [None]
